FAERS Safety Report 7612214-8 (Version None)
Quarter: 2011Q3

REPORT INFORMATION
  Report Type: 
  Country: None (occurrence: None)
  Receive Date: 20110715
  Receipt Date: 20110706
  Transmission Date: 20111222
  Serious: Yes (Other)
  Sender: FDA-Public Use
  Company Number: DE-ABBOTT-11P-062-0838092-00

PATIENT
  Sex: Male

DRUGS (3)
  1. TESTOSTERONE [Suspect]
     Indication: PRODUCT USED FOR UNKNOWN INDICATION
     Dosage: (25MG 1 IN 1 D) TRANSCUTANEOUS
     Dates: start: 20100915, end: 20101001
  2. TESTOSTERONE [Suspect]
     Dosage: ROUTE TRANSCUTANEOUS
     Dates: start: 20101001, end: 20110101
  3. BISPHOSPHONATES [Concomitant]
     Indication: PRODUCT USED FOR UNKNOWN INDICATION
     Dates: start: 20051001

REACTIONS (7)
  - NEOPLASM RECURRENCE [None]
  - BLOOD TESTOSTERONE INCREASED [None]
  - WEIGHT INCREASED [None]
  - OEDEMA PERIPHERAL [None]
  - BLOOD GONADOTROPHIN DECREASED [None]
  - PROSTATIC SPECIFIC ANTIGEN INCREASED [None]
  - DYSPNOEA EXERTIONAL [None]
